FAERS Safety Report 18967782 (Version 1)
Quarter: 2021Q1

REPORT INFORMATION
  Report Type: Spontaneous
  Country: US (occurrence: US)
  Receive Date: 20210303
  Receipt Date: 20210303
  Transmission Date: 20210420
  Serious: Yes (Hospitalization)
  Sender: FDA-Public Use
  Company Number: None

PATIENT
  Age: 3 Year
  Sex: Male

DRUGS (1)
  1. VIGABATRIN ++ POWDER 500MG CIPLA USA [Suspect]
     Active Substance: VIGABATRIN
     Indication: MUSCLE SPASMS
     Dosage: ?          OTHER ROUTE:G?TUBE?
     Dates: start: 201903

REACTIONS (1)
  - Respiratory failure [None]

NARRATIVE: CASE EVENT DATE: 202101
